FAERS Safety Report 8612090 (Version 3)
Quarter: 2012Q4

REPORT INFORMATION
  Report Type: 
  Country: US (occurrence: US)
  Receive Date: 20120613
  Receipt Date: 20120914
  Transmission Date: 20130627
  Serious: Yes (Death, Other)
  Sender: FDA-Public Use
  Company Number: US-ELI_LILLY_AND_COMPANY-US201206003226

PATIENT
  Age: 30 Year
  Sex: Female
  Weight: 68.03 kg

DRUGS (3)
  1. CIALIS [Suspect]
     Dosage: 10 mg, UNK
     Route: 048
  2. HYDROCODONE [Concomitant]
  3. TYLENOL                                 /SCH/ [Concomitant]
     Dosage: UNK, unknown
     Route: 065

REACTIONS (4)
  - Arrhythmia [Fatal]
  - Congestive cardiomyopathy [Not Recovered/Not Resolved]
  - Intentional drug misuse [Unknown]
  - Off label use [None]
